FAERS Safety Report 19258529 (Version 1)
Quarter: 2021Q2

REPORT INFORMATION
  Report Type: Spontaneous
  Country: BE (occurrence: BE)
  Receive Date: 20210514
  Receipt Date: 20210514
  Transmission Date: 20210717
  Serious: Yes (Other)
  Sender: FDA-Public Use
  Company Number: BE-TEVA-2021-BE-1912155

PATIENT
  Age: 27 Year
  Sex: Male

DRUGS (7)
  1. LEVODOPA [Suspect]
     Active Substance: LEVODOPA
     Indication: PARKINSON^S DISEASE
     Dosage: THREE TIMES A DAY
     Route: 065
  2. RASAGILINE MESILATE [Suspect]
     Active Substance: RASAGILINE MESYLATE
     Indication: PARKINSON^S DISEASE
     Route: 065
  3. PRAMIPEXOLE. [Suspect]
     Active Substance: PRAMIPEXOLE
     Indication: PARKINSON^S DISEASE
     Dosage: 2.1 MILLIGRAM DAILY;
     Route: 065
  4. AMANTADINE. [Suspect]
     Active Substance: AMANTADINE HYDROCHLORIDE
     Indication: PARKINSON^S DISEASE
     Route: 065
  5. TRIHEXYPHENIDYL [Suspect]
     Active Substance: TRIHEXYPHENIDYL
     Indication: PARKINSON^S DISEASE
     Dosage: UP TO 2MG
     Route: 065
  6. PROPRANOLOL [Suspect]
     Active Substance: PROPRANOLOL HYDROCHLORIDE
     Indication: PARKINSON^S DISEASE
     Dosage: 80 MILLIGRAM DAILY;
     Route: 065
  7. PRIMIDONE. [Suspect]
     Active Substance: PRIMIDONE
     Indication: PARKINSON^S DISEASE
     Dosage: 250 MILLIGRAM DAILY;
     Route: 065

REACTIONS (5)
  - Behaviour disorder [Unknown]
  - Nausea [Unknown]
  - Cognitive disorder [Unknown]
  - Somnolence [Unknown]
  - Drug ineffective [Unknown]
